FAERS Safety Report 9763298 (Version 1)
Quarter: 2013Q4

REPORT INFORMATION
  Report Type: Spontaneous
  Country: US (occurrence: US)
  Receive Date: 20131216
  Receipt Date: 20131216
  Transmission Date: 20140711
  Serious: No
  Sender: FDA-Public Use
  Company Number: US-BIOGENIDEC-2013BI106009

PATIENT
  Age: 31 Year
  Sex: Female
  Weight: 62 kg

DRUGS (8)
  1. TECFIDERA [Suspect]
     Indication: PRODUCT USED FOR UNKNOWN INDICATION
     Route: 048
  2. VITAMIN D GUMMIE CHW [Concomitant]
  3. MULTI 50 FOR HER [Concomitant]
  4. ASA LOW [Concomitant]
  5. SINGULAIR CHW [Concomitant]
  6. CALCIUM PLUS D PLUS K [Concomitant]
  7. BENADRYL [Concomitant]
  8. PEPCID AC [Concomitant]

REACTIONS (2)
  - Flushing [Unknown]
  - Pruritus [Unknown]
